FAERS Safety Report 9211182 (Version 1)
Quarter: 2013Q2

REPORT INFORMATION
  Report Type: Spontaneous
  Country: US (occurrence: US)
  Receive Date: 20130404
  Receipt Date: 20130404
  Transmission Date: 20140414
  Serious: Yes (Other)
  Sender: FDA-Public Use
  Company Number: US-ALLERGAN-1303335US

PATIENT
  Sex: Female

DRUGS (1)
  1. LUMIGAN? 0.01% [Suspect]
     Indication: INTRAOCULAR PRESSURE INCREASED
     Dosage: UNK
     Route: 047
     Dates: start: 201204

REACTIONS (10)
  - Pericardial effusion [Unknown]
  - Cardiac flutter [Recovered/Resolved]
  - Palpitations [Recovered/Resolved]
  - Pyrexia [Recovered/Resolved]
  - Night sweats [Recovering/Resolving]
  - C-reactive protein increased [Unknown]
  - Platelet count increased [Unknown]
  - Nasopharyngitis [Unknown]
  - Influenza [Unknown]
  - Red blood cell sedimentation rate increased [Recovered/Resolved]
